FAERS Safety Report 23521406 (Version 6)
Quarter: 2024Q4

REPORT INFORMATION
  Report Type: Spontaneous
  Country: US (occurrence: US)
  Receive Date: 20240214
  Receipt Date: 20241120
  Transmission Date: 20250115
  Serious: Yes (Hospitalization, Other)
  Sender: BRISTOL-MYERS SQUIBB COMPANY
  Company Number: US-BRISTOL-MYERS SQUIBB COMPANY-2024-019830

PATIENT
  Age: 87 Year
  Sex: Male

DRUGS (5)
  1. LENALIDOMIDE [Suspect]
     Active Substance: LENALIDOMIDE
     Indication: Myelodysplastic syndrome with multilineage dysplasia
     Route: 048
     Dates: start: 20240202
  2. LENALIDOMIDE [Suspect]
     Active Substance: LENALIDOMIDE
     Indication: Myelodysplastic syndrome
     Dosage: TAKE 1 CAPSULE BY MOUTH ONCE DAILY
     Route: 048
  3. LENALIDOMIDE [Suspect]
     Active Substance: LENALIDOMIDE
     Dosage: TAKE 1 CAPSULE BY MOUTH EVERY DAY FOR 28 DAYS
     Route: 048
  4. LENALIDOMIDE [Suspect]
     Active Substance: LENALIDOMIDE
     Dosage: TAKE 1 CAPSULE BY MOUTH EVERY DAY FOR 28 DAYS
     Route: 048
  5. IRON [Suspect]
     Active Substance: IRON
     Indication: Haemoglobin decreased

REACTIONS (7)
  - Atrial fibrillation [Unknown]
  - Haemoglobin decreased [Recovering/Resolving]
  - Cardiac flutter [Unknown]
  - Constipation [Recovered/Resolved]
  - Ageusia [Not Recovered/Not Resolved]
  - Eye disorder [Unknown]
  - Rash [Not Recovered/Not Resolved]
